FAERS Safety Report 13503164 (Version 1)
Quarter: 2017Q2

REPORT INFORMATION
  Report Type: Spontaneous
  Country: GB (occurrence: GB)
  Receive Date: 20170502
  Receipt Date: 20170502
  Transmission Date: 20170830
  Serious: Yes (Life-Threatening, Other)
  Sender: FDA-Public Use
  Company Number: GB-TEVA-762601ACC

PATIENT
  Age: 50 Year
  Sex: Female
  Weight: 47.6 kg

DRUGS (10)
  1. DERMOL [Concomitant]
     Active Substance: BENZALKONIUM CHLORIDE\CHLORHEXIDINE HYDROCHLORIDE\ISOPROPYL MYRISTATE\PARAFFIN
     Dates: start: 20161005
  2. BISOPROLOL [Concomitant]
     Active Substance: BISOPROLOL
     Dosage: 5 MILLIGRAM DAILY;
     Dates: start: 20161115
  3. FENBID [Concomitant]
     Active Substance: IBUPROFEN
     Dosage: 3 DOSAGE FORMS DAILY;
     Dates: start: 20170217
  4. PARACETAMOL [Concomitant]
     Active Substance: ACETAMINOPHEN
     Dosage: 4 GRAM DAILY;
     Dates: start: 20151116
  5. LIDOCAINE. [Concomitant]
     Active Substance: LIDOCAINE
     Dosage: APPLY THREE TIMES A DAY.
     Dates: start: 20170407
  6. TRIMETHOPRIM. [Suspect]
     Active Substance: TRIMETHOPRIM
  7. AMITRIPTYLINE [Concomitant]
     Active Substance: AMITRIPTYLINE
     Dosage: 25 MILLIGRAM DAILY;
     Dates: start: 20170112
  8. FUCIDIN [Concomitant]
     Active Substance: FUSIDIC ACID
     Dosage: 20MG/G - APPLY 3 TO 4 TIMES DAILY TO FOOT.
     Dates: start: 20170217
  9. GABAPENTIN. [Concomitant]
     Active Substance: GABAPENTIN
     Dosage: 1800 MILLIGRAM DAILY;
     Dates: start: 20161213
  10. LOSARTAN. [Concomitant]
     Active Substance: LOSARTAN
     Dosage: 50 MILLIGRAM DAILY;
     Dates: start: 20161115

REACTIONS (1)
  - Pain in jaw [Recovered/Resolved]

NARRATIVE: CASE EVENT DATE: 20170331
